FAERS Safety Report 19782642 (Version 1)
Quarter: 2021Q3

REPORT INFORMATION
  Report Type: Spontaneous
  Country: US (occurrence: US)
  Receive Date: 20210903
  Receipt Date: 20210903
  Transmission Date: 20211014
  Serious: Yes (Other)
  Sender: FDA-Public Use
  Company Number: US-APOTEX-2021AP039892

PATIENT

DRUGS (1)
  1. ZOLEDRONIC ACID [Suspect]
     Active Substance: ZOLEDRONIC ACID
     Indication: MUSCULOSKELETAL DISORDER PROPHYLAXIS
     Dosage: UNK, EVERY 12 WEEKS
     Route: 065

REACTIONS (1)
  - Renal impairment [Unknown]
